FAERS Safety Report 17689334 (Version 2)
Quarter: 2020Q2

REPORT INFORMATION
  Report Type: Spontaneous
  Country: US (occurrence: US)
  Receive Date: 20200421
  Receipt Date: 20200616
  Transmission Date: 20200714
  Serious: Yes (Hospitalization, Other)
  Sender: FDA-Public Use
  Company Number: US-PURDUE-USA-2020-0151798

PATIENT
  Sex: Female

DRUGS (4)
  1. OXYCODONE HYDROCHLORIDE (SIMILAR TO NDA 22-272) [Suspect]
     Active Substance: OXYCODONE HYDROCHLORIDE
     Indication: BREAKTHROUGH PAIN
     Dosage: 15 MG, PRN
     Route: 048
     Dates: start: 2010
  2. OXYCONTIN [Suspect]
     Active Substance: OXYCODONE HYDROCHLORIDE
     Dosage: 30 MG, BID
     Route: 048
     Dates: start: 2010
  3. OXYCONTIN [Suspect]
     Active Substance: OXYCODONE HYDROCHLORIDE
     Indication: PAIN
     Route: 048
  4. NORCO [Suspect]
     Active Substance: ACETAMINOPHEN\HYDROCODONE BITARTRATE
     Indication: PAIN
     Dosage: UNK, PRN
     Route: 065

REACTIONS (20)
  - Hip arthroplasty [Unknown]
  - Emotional distress [Recovered/Resolved]
  - Skin ulcer [Not Recovered/Not Resolved]
  - Fall [Unknown]
  - Drug withdrawal syndrome [Recovered/Resolved]
  - Diarrhoea [Recovered/Resolved]
  - Hypersomnia [Recovered/Resolved]
  - Neoplasm malignant [Not Recovered/Not Resolved]
  - Pain [Recovered/Resolved]
  - Localised infection [Unknown]
  - Fluid retention [Not Recovered/Not Resolved]
  - Product prescribing error [Recovered/Resolved]
  - Feeding disorder [Recovered/Resolved]
  - Insomnia [Recovered/Resolved]
  - Hypertension [Not Recovered/Not Resolved]
  - Swelling [Not Recovered/Not Resolved]
  - Knee arthroplasty [Unknown]
  - Urinary incontinence [Recovered/Resolved]
  - Malaise [Unknown]
  - Gait disturbance [Recovered/Resolved]

NARRATIVE: CASE EVENT DATE: 2015
